FAERS Safety Report 5273253-8 (Version None)
Quarter: 2007Q1

REPORT INFORMATION
  Report Type: 
  Country: None (occurrence: None)
  Receive Date: 20070319
  Receipt Date: 20070308
  Transmission Date: 20070707
  Serious: Yes (Other)
  Sender: FDA-Public Use
  Company Number: 238078

PATIENT

DRUGS (2)
  1. AVASTIN [Suspect]
     Dosage: 5 MG/KG
  2. GEMCITABINE [Concomitant]

REACTIONS (1)
  - OSTEONECROSIS [None]
